FAERS Safety Report 13104187 (Version 1)
Quarter: 2017Q1

REPORT INFORMATION
  Report Type: Spontaneous
  Country: US (occurrence: JP)
  Receive Date: 20170111
  Receipt Date: 20170111
  Transmission Date: 20170428
  Serious: Yes (Hospitalization)
  Sender: FDA-Public Use
  Company Number: US-CLINIGEN GROUP PLC/ CLINIGEN HEALTHCARE LTD-E2B_00005881

PATIENT
  Age: 58 Year
  Sex: Male

DRUGS (16)
  1. FOSCAVIR [Suspect]
     Active Substance: FOSCARNET SODIUM
     Indication: CYTOMEGALOVIRUS ENTEROCOLITIS
     Route: 042
     Dates: start: 20070311, end: 20070331
  2. ZITHROMAC [Suspect]
     Active Substance: AZITHROMYCIN DIHYDRATE
     Indication: ANTIBIOTIC PROPHYLAXIS
     Route: 048
     Dates: start: 20070207, end: 20070530
  3. FOSCAVIR [Suspect]
     Active Substance: FOSCARNET SODIUM
     Route: 042
     Dates: start: 20070508, end: 20070610
  4. ITRACONAZOLE. [Concomitant]
     Active Substance: ITRACONAZOLE
     Route: 048
     Dates: start: 20070612
  5. PREDONINE [Concomitant]
     Active Substance: PREDNISOLONE
     Indication: DRUG ERUPTION
     Route: 065
     Dates: start: 20070615, end: 20070621
  6. PREDONINE [Concomitant]
     Active Substance: PREDNISOLONE
     Route: 065
     Dates: start: 20070622, end: 20070625
  7. NORVIR [Suspect]
     Active Substance: RITONAVIR
     Dosage: FREQUENCY UNKNOWN
     Route: 048
     Dates: start: 20070718
  8. STOCRIN [Concomitant]
     Active Substance: EFAVIRENZ
     Indication: HIV INFECTION
     Dosage: FREQUENCY UNKNOWN
     Route: 048
     Dates: start: 20070606, end: 20070613
  9. EPZICOM [Concomitant]
     Active Substance: ABACAVIR SULFATE\LAMIVUDINE
     Indication: HIV INFECTION
     Route: 048
     Dates: start: 20070606, end: 20070614
  10. FOSCAVIR [Suspect]
     Active Substance: FOSCARNET SODIUM
     Route: 042
     Dates: start: 20070401, end: 20070507
  11. REYATAZ [Suspect]
     Active Substance: ATAZANAVIR SULFATE
     Dosage: FREQUENCY UNKNOWN
     Route: 048
     Dates: start: 20070718
  12. FOSCAVIR [Suspect]
     Active Substance: FOSCARNET SODIUM
     Route: 042
     Dates: start: 20070626, end: 20070710
  13. ZITHROMAC [Suspect]
     Active Substance: AZITHROMYCIN DIHYDRATE
     Indication: OPPORTUNISTIC INFECTION PROPHYLAXIS
     Route: 048
     Dates: start: 20070612, end: 20080331
  14. TRUVADA [Suspect]
     Active Substance: EMTRICITABINE\TENOFOVIR DISOPROXIL FUMARATE
     Route: 048
     Dates: start: 20070718
  15. POLARAMINE [Concomitant]
     Active Substance: DEXCHLORPHENIRAMINE MALEATE
     Indication: DRUG ERUPTION
     Route: 065
     Dates: start: 20070612, end: 20070618
  16. MICAFUNGIN SODIUM [Concomitant]
     Active Substance: MICAFUNGIN SODIUM
     Indication: INFECTION PROPHYLAXIS
     Route: 041
     Dates: start: 20070330, end: 20070611

REACTIONS (8)
  - Blood bilirubin increased [Not Recovered/Not Resolved]
  - Uveitis [Recovering/Resolving]
  - Glaucoma [Recovering/Resolving]
  - Cytomegalovirus test positive [Recovered/Resolved]
  - Drug eruption [Recovering/Resolving]
  - Hypokalaemia [Recovering/Resolving]
  - Renal impairment [Recovering/Resolving]
  - Hyponatraemia [Recovering/Resolving]

NARRATIVE: CASE EVENT DATE: 20070611
